FAERS Safety Report 24654512 (Version 1)
Quarter: 2024Q4

REPORT INFORMATION
  Report Type: Spontaneous
  Country: DE (occurrence: DE)
  Receive Date: 20241122
  Receipt Date: 20241122
  Transmission Date: 20250115
  Serious: Yes (Other)
  Sender: REGENERON
  Company Number: None

PATIENT
  Age: 97 Year
  Sex: Male

DRUGS (1)
  1. LIBTAYO [Suspect]
     Active Substance: CEMIPLIMAB-RWLC
     Indication: Neoplasm malignant
     Dosage: 350 MG
     Route: 042
     Dates: start: 20241111

REACTIONS (2)
  - Cornea verticillata [Unknown]
  - Visual impairment [Unknown]

NARRATIVE: CASE EVENT DATE: 20241111
